FAERS Safety Report 20792465 (Version 2)
Quarter: 2022Q2

REPORT INFORMATION
  Report Type: Report from Study
  Country: HU (occurrence: HU)
  Receive Date: 20220506
  Receipt Date: 20220616
  Transmission Date: 20220721
  Serious: Yes (Hospitalization, Other)
  Sender: FDA-Public Use
  Company Number: HU-ABBVIE-22K-076-4377855-00

PATIENT
  Sex: Female

DRUGS (8)
  1. CARBIDOPA\LEVODOPA [Suspect]
     Active Substance: CARBIDOPA\LEVODOPA
     Indication: Parkinson^s disease
     Dosage: MORNING DOSE: 6.5 ML; CONTINUOUS DOSE: 1.8 ML/HOUR; EXTRA DOSE: 1.5 ML
     Route: 050
     Dates: start: 20190219
  2. CARBIDOPA\LEVODOPA [Suspect]
     Active Substance: CARBIDOPA\LEVODOPA
  3. ALPRAZOLAM [Concomitant]
     Active Substance: ALPRAZOLAM
     Indication: Stress management
  4. SERTADEPI [Concomitant]
     Indication: Depression
     Dates: start: 2018
  5. SERTADEPI [Concomitant]
     Indication: Affective disorder
  6. AMLODIPINE BESYLATE\INDAPAMIDE\PERINDOPRIL ARGININE [Concomitant]
     Active Substance: AMLODIPINE BESYLATE\INDAPAMIDE\PERINDOPRIL ARGININE
     Indication: Hypertension
     Dosage: 10 MG PERINDOPRIL ARGININ, 2.5 MG INDAPAMIDE, 5 MG AMLODIPINE / TABLET
     Dates: start: 2019
  7. NOACID [Concomitant]
     Indication: Gastrooesophageal reflux disease
  8. NOACID [Concomitant]
     Indication: Dyspepsia

REACTIONS (7)
  - Faeces discoloured [Recovered/Resolved]
  - Colitis ischaemic [Unknown]
  - Abdominal pain lower [Recovered/Resolved]
  - Gastrointestinal inflammation [Unknown]
  - Diverticulum intestinal [Unknown]
  - Haemorrhoids [Unknown]
  - Gastrointestinal inflammation [Unknown]

NARRATIVE: CASE EVENT DATE: 20220410
